FAERS Safety Report 25230372 (Version 1)
Quarter: 2025Q2

REPORT INFORMATION
  Report Type: Spontaneous
  Country: US (occurrence: US)
  Receive Date: 20250423
  Receipt Date: 20250423
  Transmission Date: 20250717
  Serious: Yes (Hospitalization)
  Sender: MYLAN
  Company Number: US-MYLANLABS-2025M1034563

PATIENT
  Age: 77 Year
  Sex: Male

DRUGS (8)
  1. HEPARIN [Suspect]
     Active Substance: HEPARIN SODIUM
     Indication: Product used for unknown indication
  2. HEPARIN [Suspect]
     Active Substance: HEPARIN SODIUM
     Route: 065
  3. HEPARIN [Suspect]
     Active Substance: HEPARIN SODIUM
     Route: 065
  4. HEPARIN [Suspect]
     Active Substance: HEPARIN SODIUM
  5. BIVALIRUDIN [Suspect]
     Active Substance: BIVALIRUDIN
     Indication: Product used for unknown indication
  6. BIVALIRUDIN [Suspect]
     Active Substance: BIVALIRUDIN
     Route: 065
  7. BIVALIRUDIN [Suspect]
     Active Substance: BIVALIRUDIN
     Route: 065
  8. BIVALIRUDIN [Suspect]
     Active Substance: BIVALIRUDIN

REACTIONS (3)
  - Heparin-induced thrombocytopenia [Unknown]
  - Gastrointestinal haemorrhage [Unknown]
  - Shock [Unknown]
